FAERS Safety Report 9495327 (Version 2)
Quarter: 2014Q2

REPORT INFORMATION
  Report Type: Spontaneous
  Country: CA (occurrence: CA)
  Receive Date: 20130903
  Receipt Date: 20140626
  Transmission Date: 20141212
  Serious: Yes (Other)
  Sender: FDA-Public Use
  Company Number: CA-GLAXOSMITHKLINE-A1038810A

PATIENT
  Age: 63 Year
  Sex: Female
  Weight: 54.1 kg

DRUGS (14)
  1. ADVAIR [Suspect]
     Indication: CHRONIC OBSTRUCTIVE PULMONARY DISEASE
     Dosage: 1PUFF TWICE PER DAY
     Route: 055
     Dates: start: 2011
  2. MYRBETRIQ [Suspect]
     Indication: HYPERTONIC BLADDER
     Dosage: 25MG PER DAY
     Route: 065
  3. PROMETRIUM [Concomitant]
     Dosage: 100MG AT NIGHT
  4. ESTRACE [Concomitant]
     Dosage: 1MG PER DAY
  5. AMLODIPINE [Concomitant]
     Dosage: 5MG PER DAY
  6. ATIVAN [Concomitant]
     Dosage: 1MG SEE DOSAGE TEXT
  7. CALCIUM + VITAMIN D [Concomitant]
  8. SPIRIVA [Concomitant]
  9. ALVESCO [Concomitant]
     Dosage: 2PUFF PER DAY
  10. VENTOLIN [Concomitant]
  11. DEXILANT [Concomitant]
     Dosage: 60MG PER DAY
     Dates: start: 20130807
  12. ATORVASTATIN [Concomitant]
     Dosage: .5TAB ALTERNATE DAYS
  13. ASAPHEN [Concomitant]
     Dosage: 80MG PER DAY
  14. HYDROCHLOROTHIAZIDE [Concomitant]
     Dosage: 12.5MG ALTERNATE DAYS

REACTIONS (3)
  - Lung infection [Recovered/Resolved]
  - Abdominal pain upper [Recovering/Resolving]
  - Dry mouth [Recovering/Resolving]
